FAERS Safety Report 9963560 (Version 1)
Quarter: 2014Q1

REPORT INFORMATION
  Report Type: Spontaneous
  Country: US (occurrence: US)
  Receive Date: 20140305
  Receipt Date: 20140305
  Transmission Date: 20141002
  Serious: No
  Sender: FDA-Public Use
  Company Number: US-ABBVIE-13P-163-1118244-00

PATIENT
  Age: 46 Year
  Sex: Female
  Weight: 99.43 kg

DRUGS (19)
  1. HUMIRA [Suspect]
     Indication: RHEUMATOID ARTHRITIS
     Dates: start: 20130205, end: 201306
  2. HUMIRA [Suspect]
     Dates: start: 20130711
  3. LANTIS [Concomitant]
     Indication: DIABETES MELLITUS
  4. HUMALOG [Concomitant]
     Indication: DIABETES MELLITUS
  5. LEVOTHYROXINE [Concomitant]
     Indication: THYROID DISORDER
  6. LOSARTAN [Concomitant]
     Indication: BLOOD PRESSURE
  7. OMEPRAZOLE [Concomitant]
     Indication: GASTRIC DISORDER
  8. NORTRIPTYLINE [Concomitant]
     Indication: RESTLESS LEGS SYNDROME
  9. NORTRIPTYLINE [Concomitant]
     Indication: FIBROMYALGIA
  10. RANITIDINE [Concomitant]
     Indication: GASTRIC DISORDER
  11. ROPINIROLE [Concomitant]
     Indication: RESTLESS LEGS SYNDROME
  12. GABAPENTIN [Concomitant]
     Indication: PAIN
  13. LORATADINE [Concomitant]
     Indication: HYPERSENSITIVITY
  14. METHOTREXATE [Concomitant]
     Indication: RHEUMATOID ARTHRITIS
  15. PREVASTATIN [Concomitant]
     Indication: BLOOD CHOLESTEROL
  16. FOLIC ACID [Concomitant]
     Indication: CARDIAC DISORDER
  17. ASPIRIN [Concomitant]
     Indication: CARDIAC DISORDER
  18. IBUPROFEN [Concomitant]
     Indication: PAIN
  19. GLUCOSE CHEWS [Concomitant]
     Indication: BLOOD GLUCOSE DECREASED

REACTIONS (6)
  - Incorrect route of drug administration [Recovered/Resolved]
  - Viral infection [Recovered/Resolved]
  - Lower respiratory tract infection [Not Recovered/Not Resolved]
  - Dyspnoea [Recovering/Resolving]
  - Wrong technique in drug usage process [Recovered/Resolved]
  - Incorrect dose administered [Unknown]
